FAERS Safety Report 5569095-6 (Version None)
Quarter: 2007Q4

REPORT INFORMATION
  Report Type: 
  Country: None (occurrence: None)
  Receive Date: 20071220
  Receipt Date: 20070710
  Transmission Date: 20080405
  Serious: No
  Sender: FDA-Public Use
  Company Number: A0662508A

PATIENT
  Age: 87 Year
  Sex: Male

DRUGS (9)
  1. AVODART [Suspect]
     Indication: BENIGN PROSTATIC HYPERPLASIA
     Dosage: 1CAP PER DAY
     Route: 048
  2. REMERON [Concomitant]
  3. FLOMAX [Concomitant]
  4. NIFEREX [Concomitant]
  5. AGGRENOX [Concomitant]
  6. NASONEX [Concomitant]
  7. HUMIBID [Concomitant]
  8. VITAMIN CAP [Concomitant]
  9. ARANESP [Concomitant]

REACTIONS (1)
  - BLOOD CREATININE INCREASED [None]
